FAERS Safety Report 10336853 (Version 1)
Quarter: 2014Q3

REPORT INFORMATION
  Report Type: Spontaneous
  Country: US (occurrence: US)
  Receive Date: 20140723
  Receipt Date: 20140723
  Transmission Date: 20150326
  Serious: No
  Sender: FDA-Public Use
  Company Number: US-BAYER-2014-110844

PATIENT
  Age: 25 Year
  Sex: Male

DRUGS (1)
  1. SKYLA [Suspect]
     Active Substance: LEVONORGESTREL
     Dosage: UNK
     Route: 003
     Dates: start: 201406

REACTIONS (1)
  - Genital rash [Recovered/Resolved]

NARRATIVE: CASE EVENT DATE: 201407
